FAERS Safety Report 7075249-2 (Version None)
Quarter: 2010Q4

REPORT INFORMATION
  Report Type: 
  Country: None (occurrence: None)
  Receive Date: 20101030
  Receipt Date: 20100714
  Transmission Date: 20110411
  Serious: No
  Sender: FDA-Public Use
  Company Number: US-WYE-H16389810

PATIENT
  Age: 69 Year
  Sex: Female
  Weight: 59.02 kg

DRUGS (8)
  1. ADVIL PM [Suspect]
     Indication: PAIN
     Dosage: 1 CAPSULE EVERY 1 TOT
     Route: 048
     Dates: start: 20100712, end: 20100712
  2. ADVIL PM [Suspect]
     Indication: INSOMNIA
  3. VYTORIN [Concomitant]
  4. ACETYLSALICYLIC ACID SRT [Concomitant]
  5. PRILOSEC [Concomitant]
  6. ASCORBIC ACID [Concomitant]
  7. HYZAAR [Concomitant]
  8. EVISTA [Concomitant]

REACTIONS (2)
  - PSYCHOMOTOR HYPERACTIVITY [None]
  - RESTLESSNESS [None]
